FAERS Safety Report 4625165-8 (Version None)
Quarter: 2005Q2

REPORT INFORMATION
  Report Type: 
  Country: None (occurrence: None)
  Receive Date: 20050325
  Receipt Date: 20050301
  Transmission Date: 20051028
  Serious: No
  Sender: FDA-Public Use
  Company Number: USA050188723

PATIENT
  Age: 57 Year
  Sex: Female
  Weight: 41 kg

DRUGS (2)
  1. FORTEO [Suspect]
     Indication: OSTEOPOROSIS
     Dosage: 20 UG/1 DAY
     Dates: start: 20041001, end: 20050101
  2. VALIUM [Concomitant]

REACTIONS (8)
  - EYE SWELLING [None]
  - FEELING ABNORMAL [None]
  - INJECTION SITE HAEMORRHAGE [None]
  - MOBILITY DECREASED [None]
  - OEDEMA [None]
  - OSTEOARTHRITIS [None]
  - PAIN IN EXTREMITY [None]
  - SWELLING [None]
